FAERS Safety Report 20159693 (Version 3)
Quarter: 2021Q4

REPORT INFORMATION
  Report Type: Report from Study
  Country: US (occurrence: US)
  Receive Date: 20211208
  Receipt Date: 20211222
  Transmission Date: 20220303
  Serious: Yes (Other)
  Sender: FDA-Public Use
  Company Number: US-NOVARTISTESTPH-NVSC2021US279914

PATIENT
  Sex: Male
  Weight: 9 kg

DRUGS (1)
  1. KYMRIAH [Suspect]
     Active Substance: TISAGENLECLEUCEL
     Indication: Product used for unknown indication
     Dosage: UNK UNK, ONCE/SINGLE (DOSE 3.8E6)
     Route: 042
     Dates: start: 20210927, end: 20210927

REACTIONS (1)
  - Post-depletion B-cell recovery [Unknown]
